FAERS Safety Report 26191822 (Version 1)
Quarter: 2025Q4

REPORT INFORMATION
  Report Type: Spontaneous
  Country: US (occurrence: US)
  Receive Date: 20251223
  Receipt Date: 20251223
  Transmission Date: 20260118
  Serious: No
  Sender: ABBVIE
  Company Number: US-ABBVIE-6601208

PATIENT
  Sex: Male

DRUGS (1)
  1. VYALEV [Suspect]
     Active Substance: FOSCARBIDOPA\FOSLEVODOPA
     Indication: Parkinson^s disease
     Route: 058
     Dates: start: 20251101

REACTIONS (5)
  - Catheter site erythema [Not Recovered/Not Resolved]
  - Catheter site vesicles [Recovered/Resolved]
  - Vitreous floaters [Not Recovered/Not Resolved]
  - Product contamination physical [Unknown]
  - Catheter site bruise [Recovered/Resolved]

NARRATIVE: CASE EVENT DATE: 20250101
